FAERS Safety Report 18630431 (Version 1)
Quarter: 2020Q4

REPORT INFORMATION
  Report Type: Spontaneous
  Country: JP (occurrence: JP)
  Receive Date: 20201217
  Receipt Date: 20201217
  Transmission Date: 20210114
  Serious: Yes (Death, Life-Threatening)
  Sender: FDA-Public Use
  Company Number: JP-ELI_LILLY_AND_COMPANY-JP202012001295

PATIENT
  Age: 87 Year
  Sex: Male

DRUGS (1)
  1. ADCIRCA [Suspect]
     Active Substance: TADALAFIL
     Indication: PULMONARY HYPERTENSION
     Dosage: 20 MG, DAILY
     Route: 048
     Dates: start: 20201120, end: 20201201

REACTIONS (2)
  - Death [Fatal]
  - Essential thrombocythaemia [Unknown]

NARRATIVE: CASE EVENT DATE: 20201120
